FAERS Safety Report 4466112-1 (Version None)
Quarter: 2004Q4

REPORT INFORMATION
  Report Type: 
  Country: None (occurrence: None)
  Receive Date: 20041005
  Receipt Date: 20040916
  Transmission Date: 20050328
  Serious: Yes (Hospitalization)
  Sender: FDA-Public Use
  Company Number: PHEH2004US10044

PATIENT
  Age: 78 Year
  Sex: Female
  Weight: 67 kg

DRUGS (24)
  1. ZELNORM [Suspect]
     Indication: CONSTIPATION
     Dates: start: 20030612, end: 20040909
  2. PANTOPRAZOLE [Concomitant]
     Indication: GASTROOESOPHAGEAL REFLUX DISEASE
     Dosage: 40 MG, QD
     Route: 048
     Dates: start: 20020301
  3. NEURONTIN [Concomitant]
     Indication: LUMBAR SPINAL STENOSIS
     Dosage: 300 MG, BID
     Route: 048
     Dates: start: 20011101
  4. DURAGESIC [Concomitant]
     Indication: LUMBAR SPINAL STENOSIS
     Dosage: 100 UNK, QD
     Route: 062
     Dates: start: 20011101
  5. DARVOCET-N 100 [Concomitant]
     Dosage: UNK, PRN
  6. PREDNISONE [Concomitant]
     Indication: LUMBAR SPINAL STENOSIS
     Dosage: 5 MG, QD
  7. SYNTHROID [Concomitant]
     Indication: THYROIDECTOMY
     Dosage: .88 UNK, QD
  8. LIPITOR [Concomitant]
     Indication: HYPERCHOLESTEROLAEMIA
     Dosage: 10 MG, QD
     Route: 048
  9. ZOLOFT [Concomitant]
     Indication: DEPRESSION
     Dosage: 50 MG, QD
  10. BENTYL [Concomitant]
     Indication: IRRITABLE BOWEL SYNDROME
  11. CARDIAZEM [Concomitant]
     Indication: HYPERTENSION
     Dosage: 120 MG, QD
     Route: 048
  12. CARDURA [Concomitant]
     Indication: HYPERTENSION
     Dosage: 2 MG, QD
     Route: 048
  13. LABETALOL [Concomitant]
     Indication: HYPERTENSION
  14. SIMVASTATIN [Concomitant]
     Dosage: 20 MG, QD
     Route: 048
  15. ATIVAN [Concomitant]
     Dosage: 1 MG, QHS
     Route: 048
  16. REMINYL [Concomitant]
     Dosage: 8 MG, BID
     Route: 048
  17. TENEX [Concomitant]
     Dosage: 12 MG, QHS
     Route: 048
  18. NAMENDA [Concomitant]
     Dosage: 5 MG, QD
  19. XALATAN [Concomitant]
  20. OCUVITE [Concomitant]
     Dosage: UNK, QD
     Route: 048
  21. COZAAR [Concomitant]
     Dosage: 50 MG, BID
     Route: 048
  22. KLOR-CON [Concomitant]
     Dosage: 20 MEQ, QD
     Route: 048
  23. CLONIDINE HCL [Concomitant]
     Dosage: .1 MG, BID
     Route: 048
  24. MECLIZINE [Suspect]

REACTIONS (26)
  - ABDOMINAL PAIN [None]
  - APPETITE DISORDER [None]
  - ARTERIAL STENOSIS [None]
  - BLOOD ALBUMIN DECREASED [None]
  - BLOOD CREATININE INCREASED [None]
  - BLOOD UREA INCREASED [None]
  - COELIAC ARTERY COMPRESSION SYNDROME [None]
  - COLITIS ISCHAEMIC [None]
  - COMPUTERISED TOMOGRAM ABNORMAL [None]
  - CONFUSIONAL STATE [None]
  - COUGH [None]
  - DIARRHOEA [None]
  - DIZZINESS [None]
  - DRUG WITHDRAWAL SYNDROME [None]
  - FIBROSIS [None]
  - GASTROINTESTINAL MUCOSAL DISORDER [None]
  - HYPOCALCAEMIA [None]
  - MUCOSAL INFLAMMATION [None]
  - NAUSEA [None]
  - OEDEMA MUCOSAL [None]
  - PLEURAL EFFUSION [None]
  - SIGMOIDOSCOPY ABNORMAL [None]
  - URINE ANALYSIS ABNORMAL [None]
  - VIRAL INFECTION [None]
  - VOMITING [None]
  - WHITE BLOOD CELL COUNT INCREASED [None]
